FAERS Safety Report 5247141-7 (Version None)
Quarter: 2007Q1

REPORT INFORMATION
  Report Type: 
  Country: None (occurrence: None)
  Receive Date: 20070221
  Receipt Date: 20070212
  Transmission Date: 20070707
  Serious: Yes (Death)
  Sender: FDA-Public Use
  Company Number: 163-21880-06101060

PATIENT
  Age: 54 Year
  Sex: Male

DRUGS (2)
  1. REVLIMID [Suspect]
     Indication: MULTIPLE MYELOMA
     Dosage: 25 MG, 1 IN 1 D, ORAL, 20 MG, DAILY, ORAL
     Route: 048
     Dates: start: 20060920
  2. REVLIMID [Suspect]
     Indication: MULTIPLE MYELOMA
     Dosage: 25 MG, 1 IN 1 D, ORAL, 20 MG, DAILY, ORAL
     Route: 048
     Dates: start: 20060920

REACTIONS (2)
  - MUSCULAR WEAKNESS [None]
  - NEUROPATHY [None]
